FAERS Safety Report 7202107-2 (Version None)
Quarter: 2010Q4

REPORT INFORMATION
  Report Type: 
  Country: None (occurrence: None)
  Receive Date: 20101229
  Receipt Date: 20101220
  Transmission Date: 20110411
  Serious: Yes (Hospitalization)
  Sender: FDA-Public Use
  Company Number: JP-ASTRAZENECA-2010SE58691

PATIENT
  Age: 57 Year
  Sex: Male
  Weight: 83 kg

DRUGS (8)
  1. CRESTOR [Suspect]
     Indication: DYSLIPIDAEMIA
     Route: 048
     Dates: start: 20100422, end: 20101203
  2. AMLODIN OD [Concomitant]
     Indication: HYPERTENSION
     Route: 048
     Dates: start: 20100422
  3. MICARDIS [Concomitant]
     Indication: HYPERTENSION
     Route: 048
     Dates: start: 20100422
  4. ALOSITOL [Concomitant]
     Indication: HYPERURICAEMIA
     Route: 048
     Dates: start: 20100422
  5. ASPIRIN [Concomitant]
     Indication: MYOCARDIAL INFARCTION
     Route: 048
     Dates: start: 20100422
  6. MAINTATE [Concomitant]
     Indication: MYOCARDIAL INFARCTION
     Route: 048
     Dates: start: 20100422
  7. LASIX [Concomitant]
     Indication: MYOCARDIAL INFARCTION
     Route: 048
     Dates: start: 20100422
  8. TAKEPRON [Concomitant]
     Indication: GASTRIC ULCER
     Route: 048
     Dates: start: 20100422

REACTIONS (3)
  - DEHYDRATION [None]
  - INFLAMMATION [None]
  - RHABDOMYOLYSIS [None]
